FAERS Safety Report 5804510-1 (Version None)
Quarter: 2008Q3

REPORT INFORMATION
  Report Type: 
  Country: None (occurrence: None)
  Receive Date: 20080707
  Receipt Date: 20080707
  Transmission Date: 20090109
  Serious: Yes (Other)
  Sender: FDA-Public Use
  Company Number: None

PATIENT
  Age: 4 Year
  Sex: Female
  Weight: 19.5 kg

DRUGS (2)
  1. PROTOPIC [Suspect]
     Indication: DERMATITIS ATOPIC
     Dosage: UNKNOWN TWICE A DAY TOP, 1 YEAR CONTINUALLY
     Route: 061
  2. PROTOPIC [Suspect]
     Indication: DERMATITIS ATOPIC
     Dosage: UNKNOWN TWICE A DAY TOP, 3 YEARS OFF AND ON
     Route: 061

REACTIONS (1)
  - RASH MACULAR [None]
